FAERS Safety Report 12509495 (Version 3)
Quarter: 2016Q3

REPORT INFORMATION
  Report Type: Report from Study
  Country: US (occurrence: US)
  Receive Date: 20160629
  Receipt Date: 20160809
  Transmission Date: 20161109
  Serious: Yes (Other)
  Sender: FDA-Public Use
  Company Number: US-JNJFOC-20160621595

PATIENT
  Sex: Female
  Weight: 124.74 kg

DRUGS (17)
  1. RISPERIDONE. [Concomitant]
     Active Substance: RISPERIDONE
     Indication: DEPRESSION
     Route: 065
     Dates: start: 2009
  2. TRIAMTERENE. [Concomitant]
     Active Substance: TRIAMTERENE
     Indication: FLUID RETENTION
     Route: 065
  3. TRIAMTERENE. [Concomitant]
     Active Substance: TRIAMTERENE
     Indication: SWELLING
     Route: 065
  4. DICLOFENAC SODIUM. [Concomitant]
     Active Substance: DICLOFENAC SODIUM
     Indication: PSORIATIC ARTHROPATHY
     Route: 065
     Dates: start: 2015
  5. REMICADE [Suspect]
     Active Substance: INFLIXIMAB
     Indication: PSORIATIC ARTHROPATHY
     Dosage: FEB/MAR-2016
     Route: 042
     Dates: start: 2016, end: 2016
  6. LEVOTHYROXINE. [Concomitant]
     Active Substance: LEVOTHYROXINE
     Indication: THYROID DISORDER
     Route: 065
     Dates: start: 2015
  7. LAMICTAL [Concomitant]
     Active Substance: LAMOTRIGINE
     Indication: DEPRESSION
     Route: 065
     Dates: start: 2009
  8. FENOFIBRATE. [Concomitant]
     Active Substance: FENOFIBRATE
     Indication: BLOOD CHOLESTEROL
     Route: 065
     Dates: start: 2015
  9. NUVIGIL [Concomitant]
     Active Substance: ARMODAFINIL
     Indication: SLEEP APNOEA SYNDROME
     Route: 065
     Dates: start: 2009
  10. CALCIUM W/MAGNESIUM [Concomitant]
     Active Substance: CALCIUM\MAGNESIUM
     Indication: MUSCLE SPASMS
     Route: 065
     Dates: start: 2015
  11. CYMBALTA [Concomitant]
     Active Substance: DULOXETINE HYDROCHLORIDE
     Indication: PSORIATIC ARTHROPATHY
     Route: 065
     Dates: start: 2015
  12. VITAMIN D [Concomitant]
     Active Substance: CHOLECALCIFEROL
     Route: 065
     Dates: start: 2015
  13. SULFASALAZINE. [Concomitant]
     Active Substance: SULFASALAZINE
     Indication: ARTHRITIS
     Route: 065
     Dates: start: 2015
  14. RESVERATROL [Concomitant]
     Active Substance: RESVERATROL
     Route: 065
     Dates: start: 2015
  15. FOLIC ACID. [Concomitant]
     Active Substance: FOLIC ACID
     Indication: PSORIATIC ARTHROPATHY
     Route: 065
     Dates: start: 2015
  16. METHOTREXATE. [Concomitant]
     Active Substance: METHOTREXATE
     Indication: PSORIATIC ARTHROPATHY
     Route: 065
     Dates: start: 2015
  17. PRAVASTATIN. [Concomitant]
     Active Substance: PRAVASTATIN
     Indication: PSORIATIC ARTHROPATHY
     Route: 065
     Dates: start: 2015

REACTIONS (5)
  - Cardiac flutter [Recovered/Resolved]
  - Hypersensitivity [Recovered/Resolved]
  - Nausea [Recovered/Resolved]
  - Infusion related reaction [Recovered/Resolved]
  - Back pain [Recovered/Resolved]

NARRATIVE: CASE EVENT DATE: 2016
